FAERS Safety Report 7575362-7 (Version None)
Quarter: 2011Q2

REPORT INFORMATION
  Report Type: 
  Country: None (occurrence: None)
  Receive Date: 20110627
  Receipt Date: 20110614
  Transmission Date: 20111010
  Serious: Yes (Death, Hospitalization, Other)
  Sender: FDA-Public Use
  Company Number: US-ELI_LILLY_AND_COMPANY-US201106004214

PATIENT
  Sex: Female

DRUGS (1)
  1. EVISTA [Suspect]
     Dosage: 1 DF, UNK

REACTIONS (4)
  - DEATH [None]
  - HIP ARTHROPLASTY [None]
  - ALTERED STATE OF CONSCIOUSNESS [None]
  - CEREBROVASCULAR ACCIDENT [None]
